FAERS Safety Report 8854002 (Version 2)
Quarter: 2012Q4

REPORT INFORMATION
  Report Type: 
  Country: SI (occurrence: SI)
  Receive Date: 20121022
  Receipt Date: 20121024
  Transmission Date: 20130627
  Serious: Yes (Other)
  Sender: FDA-Public Use
  Company Number: PHHY2012SI092576

PATIENT
  Age: 88 Year
  Sex: Female

DRUGS (9)
  1. EXELON [Suspect]
     Indication: DEMENTIA ALZHEIMER^S TYPE
     Dosage: 1.5 mg, daily
     Route: 048
     Dates: start: 20120912
  2. EXELON [Suspect]
     Dosage: 1.5 mg, BID
     Route: 048
     Dates: start: 20120919
  3. EXELON [Suspect]
     Dosage: 3 mg, BID
     Route: 048
     Dates: start: 20120925
  4. EXELON [Suspect]
     Dosage: 3 mg OD plus 1.5 mg OD
     Route: 048
     Dates: start: 20120927, end: 20121015
  5. NITRO-DUR [Concomitant]
  6. CONTROLOC [Concomitant]
  7. CRESTOR [Concomitant]
  8. ASPIRIN [Concomitant]
  9. FRAGMIN                                 /NET/ [Concomitant]

REACTIONS (5)
  - Angina pectoris [Recovered/Resolved]
  - Chest discomfort [Recovered/Resolved]
  - Hypertension [Recovered/Resolved]
  - Dyspnoea [Unknown]
  - Fatigue [Unknown]
